FAERS Safety Report 13727109 (Version 1)
Quarter: 2017Q3

REPORT INFORMATION
  Report Type: Spontaneous
  Country: US (occurrence: US)
  Receive Date: 20170707
  Receipt Date: 20170707
  Transmission Date: 20171127
  Serious: No
  Sender: FDA-Public Use
  Company Number: US-BAYER-2017-129461

PATIENT
  Age: 34 Year
  Sex: Female
  Weight: 102 kg

DRUGS (4)
  1. ALEVE [Suspect]
     Active Substance: NAPROXEN SODIUM
     Indication: MIGRAINE
     Dosage: UNK 1 WITH A FULL GLASS OF WATER
     Route: 048
     Dates: start: 201707
  2. EXCEDRIN [ACETYLSALICYLIC ACID,CAFFEINE,PARACETAMOL,SALICYLAMIDE] [Concomitant]
     Active Substance: ACETAMINOPHEN\ASPIRIN\CAFFEINE
     Dosage: UNK
  3. ALEVE [Suspect]
     Active Substance: NAPROXEN SODIUM
     Indication: TENDONITIS
     Dosage: UNK 1 WITH A FULL GLASS OF WATER
     Route: 048
     Dates: end: 20170702
  4. CENTRUM [MINERALS NOS,VITAMINS NOS] [Concomitant]
     Dosage: UNK

REACTIONS (1)
  - Product use in unapproved indication [Unknown]
